FAERS Safety Report 5266693-4 (Version None)
Quarter: 2007Q1

REPORT INFORMATION
  Report Type: 
  Country: None (occurrence: None)
  Receive Date: 20070312
  Receipt Date: 20070302
  Transmission Date: 20070707
  Serious: Yes (Other)
  Sender: FDA-Public Use
  Company Number: 028-20785-07030268

PATIENT
  Sex: Male

DRUGS (4)
  1. THALOMID [Suspect]
     Indication: MULTIPLE MYELOMA
     Dosage: SEE IMAGE
     Route: 048
     Dates: start: 20061101
  2. FENTANYL [Suspect]
     Indication: PAIN
     Dosage: 25 MG
  3. DECADRON [Concomitant]
  4. COUMADIN [Concomitant]

REACTIONS (3)
  - COMA [None]
  - PAIN [None]
  - SOMNOLENCE [None]
